FAERS Safety Report 17144566 (Version 1)
Quarter: 2019Q4

REPORT INFORMATION
  Report Type: Spontaneous
  Country: US (occurrence: US)
  Receive Date: 20191212
  Receipt Date: 20191212
  Transmission Date: 20200122
  Serious: Yes (Hospitalization)
  Sender: FDA-Public Use
  Company Number: US-PFIZER INC-2019532605

PATIENT
  Age: 47 Year
  Sex: Female

DRUGS (1)
  1. TESTOSTERONE CIPIONATE [Suspect]
     Active Substance: TESTOSTERONE
     Dosage: UNK
     Route: 030

REACTIONS (4)
  - Dysuria [Not Recovered/Not Resolved]
  - Off label use [Unknown]
  - Urinary retention [Not Recovered/Not Resolved]
  - Product use issue [Unknown]
